FAERS Safety Report 5337306-8 (Version None)
Quarter: 2007Q2

REPORT INFORMATION
  Report Type: 
  Country: None (occurrence: None)
  Receive Date: 20070529
  Receipt Date: 20070514
  Transmission Date: 20071010
  Serious: Yes (Other)
  Sender: FDA-Public Use
  Company Number: PHNU2007DE01805

PATIENT
  Sex: Female

DRUGS (2)
  1. STARLIX [Suspect]
  2. METFORMIN HCL [Suspect]

REACTIONS (2)
  - C-REACTIVE PROTEIN INCREASED [None]
  - LABORATORY TEST ABNORMAL [None]
